FAERS Safety Report 17224906 (Version 3)
Quarter: 2023Q2

REPORT INFORMATION
  Report Type: Report from Study
  Country: US (occurrence: US)
  Receive Date: 20200102
  Receipt Date: 20230404
  Transmission Date: 20230721
  Serious: Yes (Life-Threatening, Hospitalization, Other)
  Sender: FDA-Public Use
  Company Number: US-AEGERION PHARMACEUTICAL, INC-AEGR004641

PATIENT
  Age: 15 Year
  Sex: Female

DRUGS (10)
  1. METRELEPTIN [Suspect]
     Active Substance: METRELEPTIN
     Indication: Congenital generalised lipodystrophy
     Dosage: 2.5 MILLIGRAM, QD
     Dates: start: 20150315, end: 20170223
  2. METRELEPTIN [Suspect]
     Active Substance: METRELEPTIN
     Dosage: 3.5 MILLIGRAM, QD
     Dates: start: 20170223, end: 20180402
  3. METRELEPTIN [Suspect]
     Active Substance: METRELEPTIN
     Dosage: 4 MILLIGRAM, QD
     Dates: start: 20180402, end: 20190322
  4. METRELEPTIN [Suspect]
     Active Substance: METRELEPTIN
     Dosage: 6 MILLIGRAM, QD
     Dates: start: 20190322, end: 20200413
  5. NPH INSULIN [Concomitant]
     Active Substance: INSULIN BEEF
     Indication: Insulin resistance
     Dosage: 60 MILLILITER, QD
     Route: 058
  6. METFORMIN [Concomitant]
     Active Substance: METFORMIN HYDROCHLORIDE
     Indication: Insulin resistance
     Dosage: 1 GRAM, QD
  7. LISINOPRIL [Concomitant]
     Active Substance: LISINOPRIL
     Indication: Hypertension
     Dosage: 10 MILLIGRAM, QD
     Route: 048
  8. FUROSEMIDE [Concomitant]
     Active Substance: FUROSEMIDE
     Indication: Oedema
     Dosage: 20 MILLIGRAM, BID
     Route: 048
  9. LACTULOSE [Concomitant]
     Active Substance: LACTULOSE
     Indication: Liver disorder
     Dosage: 15 MILLILITER, BID
     Route: 048
  10. RIFAXIMIN [Concomitant]
     Active Substance: RIFAXIMIN
     Indication: Liver disorder
     Dosage: 500 MILLIGRAM, BID
     Route: 048

REACTIONS (1)
  - Hepatic encephalopathy [Recovered/Resolved]

NARRATIVE: CASE EVENT DATE: 20190519
